FAERS Safety Report 22331664 (Version 5)
Quarter: 2024Q2

REPORT INFORMATION
  Report Type: Spontaneous
  Country: US (occurrence: US)
  Receive Date: 20230517
  Receipt Date: 20240506
  Transmission Date: 20240716
  Serious: Yes (Other)
  Sender: FDA-Public Use
  Company Number: US-PFIZER INC-PV202300087099

PATIENT
  Age: 35 Year
  Sex: Male

DRUGS (4)
  1. HYDROXYZINE PAMOATE [Suspect]
     Active Substance: HYDROXYZINE PAMOATE
     Indication: Anxiety
     Dosage: 50 MG, DAILY, NIGHTLY FOR THE PREVIOUS 10 DAYS
     Route: 048
  2. HYDROXYZINE PAMOATE [Suspect]
     Active Substance: HYDROXYZINE PAMOATE
     Indication: Insomnia
  3. RISPERIDONE [Suspect]
     Active Substance: RISPERIDONE
     Indication: Anxiety
     Dosage: UNK, ON A STABLE DOSE
  4. RISPERIDONE [Suspect]
     Active Substance: RISPERIDONE
     Indication: Insomnia
     Dosage: 3 MG

REACTIONS (2)
  - Priapism [Recovered/Resolved]
  - Off label use [Unknown]
